FAERS Safety Report 22295760 (Version 1)
Quarter: 2023Q2

REPORT INFORMATION
  Report Type: Spontaneous
  Country: CN (occurrence: CN)
  Receive Date: 20230508
  Receipt Date: 20230508
  Transmission Date: 20230721
  Serious: Yes (Hospitalization)
  Sender: FDA-Public Use
  Company Number: CN-002147023-NVSC2023CN102688

PATIENT
  Age: 78 Year
  Sex: Female

DRUGS (3)
  1. GLYCOPYRRONIUM\INDACATEROL [Suspect]
     Active Substance: GLYCOPYRRONIUM\INDACATEROL
     Indication: Lung neoplasm malignant
     Dosage: 1 DOSAGE FORM (PILL), QD
     Dates: start: 20230330, end: 20230403
  2. GLYCOPYRRONIUM\INDACATEROL [Suspect]
     Active Substance: GLYCOPYRRONIUM\INDACATEROL
     Indication: Inhalation therapy
  3. BAMBUTEROL HYDROCHLORIDE [Suspect]
     Active Substance: BAMBUTEROL HYDROCHLORIDE
     Indication: Lung neoplasm malignant
     Dosage: 10 ML, QD
     Route: 048
     Dates: start: 20230403, end: 20230410

REACTIONS (9)
  - Drug eruption [Recovering/Resolving]
  - Pruritus [Unknown]
  - Erythema [Unknown]
  - Pain [Unknown]
  - Rash [Recovering/Resolving]
  - Dyspnoea [Unknown]
  - Palpitations [Unknown]
  - Skin lesion [Not Recovered/Not Resolved]
  - Product use in unapproved indication [Unknown]

NARRATIVE: CASE EVENT DATE: 20230407
